FAERS Safety Report 9912447 (Version 2)
Quarter: 2015Q1

REPORT INFORMATION
  Report Type: Spontaneous
  Country: US (occurrence: US)
  Receive Date: 20140220
  Receipt Date: 20150107
  Transmission Date: 20150721
  Serious: Yes (Other)
  Sender: FDA-Public Use
  Company Number: US-BRISTOL-MYERS SQUIBB COMPANY-20168316

PATIENT
  Sex: Female

DRUGS (17)
  1. VENLAFAXINE [Concomitant]
     Active Substance: VENLAFAXINE HYDROCHLORIDE
  2. ONDANSETRON [Concomitant]
     Active Substance: ONDANSETRON
  3. NAPROXEN. [Concomitant]
     Active Substance: NAPROXEN
  4. DOCUSATE SODIUM. [Concomitant]
     Active Substance: DOCUSATE SODIUM
  5. LEVOTHYROXINE [Concomitant]
     Active Substance: LEVOTHYROXINE
  6. FLONASE                            /00908302/ [Concomitant]
  7. FOLIC ACID. [Concomitant]
     Active Substance: FOLIC ACID
  8. LISINOPRIL. [Concomitant]
     Active Substance: LISINOPRIL
  9. TYLENOL WITH CODEINE [Concomitant]
     Active Substance: ACETAMINOPHEN\CODEINE PHOSPHATE
  10. PERCOCET                           /00446701/ [Concomitant]
     Active Substance: ACETAMINOPHEN\OXYCODONE HYDROCHLORIDE\OXYCODONE TEREPHTHALATE
  11. FERROUS SULFATE [Concomitant]
     Active Substance: FERROUS SULFATE\FERROUS SULFATE, DRIED
  12. ROBAXIN [Concomitant]
     Active Substance: METHOCARBAMOL
  13. PRILOSEC [Concomitant]
     Active Substance: OMEPRAZOLE MAGNESIUM
  14. BIAXIN [Concomitant]
     Active Substance: CLARITHROMYCIN
  15. DOXYCYCLINE. [Concomitant]
     Active Substance: DOXYCYCLINE
  16. BYETTA [Suspect]
     Active Substance: EXENATIDE
     Indication: PRODUCT USED FOR UNKNOWN INDICATION
     Dosage: 10 UNK, UNK
     Route: 058
     Dates: start: 20120318
  17. CYCLOBENZAPRINE [Concomitant]
     Active Substance: CYCLOBENZAPRINE

REACTIONS (1)
  - Thyroid cancer [Unknown]

NARRATIVE: CASE EVENT DATE: 20120723
